FAERS Safety Report 10729799 (Version 2)
Quarter: 2016Q1

REPORT INFORMATION
  Report Type: Spontaneous
  Country: US (occurrence: US)
  Receive Date: 20150122
  Receipt Date: 20160126
  Transmission Date: 20160525
  Serious: No
  Sender: FDA-Public Use
  Company Number: US-BAUSCH-BL-2014-007334

PATIENT
  Sex: Female

DRUGS (3)
  1. NIFEDIAC CC [Suspect]
     Active Substance: NIFEDIPINE
     Indication: ASTHMA
  2. NIFEDIAC CC [Suspect]
     Active Substance: NIFEDIPINE
     Indication: HYPERTENSION
  3. NIFEDIAC CC [Suspect]
     Active Substance: NIFEDIPINE
     Indication: RAYNAUD^S PHENOMENON
     Dates: start: 1999

REACTIONS (8)
  - Blister [Unknown]
  - Visual impairment [Not Recovered/Not Resolved]
  - Erythema [Unknown]
  - Blood urine present [Not Recovered/Not Resolved]
  - Alopecia [Unknown]
  - Feeling abnormal [Unknown]
  - Migraine [Unknown]
  - Off label use [Not Recovered/Not Resolved]

NARRATIVE: CASE EVENT DATE: 1999
